FAERS Safety Report 6449373-9 (Version None)
Quarter: 2009Q4

REPORT INFORMATION
  Report Type: 
  Country: None (occurrence: None)
  Receive Date: 20091120
  Receipt Date: 20081216
  Transmission Date: 20100525
  Serious: Yes (Hospitalization)
  Sender: FDA-Public Use
  Company Number: US-AMGEN-QUU318211

PATIENT
  Age: 51 Year
  Sex: Male
  Weight: 90.3 kg

DRUGS (6)
  1. ENBREL [Suspect]
     Indication: ANKYLOSING SPONDYLITIS
     Dates: start: 20030506, end: 20071022
  2. VITAMIN C AND E [Concomitant]
  3. MULTI-VITAMINS [Concomitant]
     Dates: start: 20020830
  4. NABUMETONE [Concomitant]
     Dates: start: 20030123, end: 20030515
  5. NOVOLIN R [Concomitant]
     Dates: start: 20030528, end: 20070710
  6. INDOMETHACIN [Concomitant]
     Dates: start: 19980427, end: 20030320

REACTIONS (2)
  - ACUTE MYELOID LEUKAEMIA [None]
  - DIARRHOEA [None]
